FAERS Safety Report 25439315 (Version 1)
Quarter: 2025Q2

REPORT INFORMATION
  Report Type: Report from Study
  Country: US (occurrence: US)
  Receive Date: 20250616
  Receipt Date: 20250616
  Transmission Date: 20250716
  Serious: No
  Sender: SANDOZ
  Company Number: US-SANDOZ-SDZ2025US041592

PATIENT
  Age: 15 Year
  Sex: Male

DRUGS (2)
  1. OMNITROPE [Suspect]
     Active Substance: SOMATROPIN
     Indication: Short stature
     Dosage: 2 MG, QD (STRENGTH-10 MG/1.5 ML), PEN 10
     Route: 058
     Dates: start: 202504
  2. OMNITROPE [Suspect]
     Active Substance: SOMATROPIN
     Indication: Short stature
     Dosage: 2 MG, QD (STRENGTH-10 MG/1.5 ML), PEN 10
     Route: 058
     Dates: start: 202504

REACTIONS (3)
  - Circumstance or information capable of leading to medication error [Unknown]
  - Product lot number issue [Unknown]
  - Device leakage [Unknown]

NARRATIVE: CASE EVENT DATE: 20250401
